FAERS Safety Report 6974605-8 (Version None)
Quarter: 2010Q3

REPORT INFORMATION
  Report Type: 
  Country: None (occurrence: None)
  Receive Date: 20100909
  Receipt Date: 20100909
  Transmission Date: 20110219
  Serious: Yes (Other)
  Sender: FDA-Public Use
  Company Number: None

PATIENT
  Age: 65 Year
  Sex: Female
  Weight: 81.6475 kg

DRUGS (1)
  1. LOMOTIL [Suspect]
     Indication: DIARRHOEA
     Dosage: 2 TABS PRN PO
     Route: 048
     Dates: start: 20100826, end: 20100826

REACTIONS (3)
  - ANGIOEDEMA [None]
  - DRUG HYPERSENSITIVITY [None]
  - DYSPNOEA [None]
